FAERS Safety Report 16904156 (Version 13)
Quarter: 2021Q2

REPORT INFORMATION
  Report Type: Report from Study
  Country: CA (occurrence: CA)
  Receive Date: 20191010
  Receipt Date: 20210624
  Transmission Date: 20210716
  Serious: Yes (Other)
  Sender: FDA-Public Use
  Company Number: CA-PFIZER INC-2019225148

PATIENT
  Age: 52 Year
  Sex: Male

DRUGS (8)
  1. AVAMYS [Concomitant]
     Active Substance: FLUTICASONE FUROATE
     Dosage: 27.5 MICROGRAM, QD
     Route: 045
  2. AMITRIPTYLINE [Concomitant]
     Active Substance: AMITRIPTYLINE
     Dosage: UNK UNK, QD
  3. ENTYVIO [Suspect]
     Active Substance: VEDOLIZUMAB
     Indication: CROHN^S DISEASE
     Dosage: 300 MILLIGRAM
     Route: 042
     Dates: start: 20171123
  4. ENTYVIO [Suspect]
     Active Substance: VEDOLIZUMAB
     Dosage: 300 MILLIGRAM
     Route: 042
  5. ENTYVIO [Suspect]
     Active Substance: VEDOLIZUMAB
     Dosage: 300 MG, CYCLIC (EVERY 4 WEEKS)
     Route: 042
     Dates: end: 20210330
  6. TECTA [Suspect]
     Active Substance: PANTOPRAZOLE MAGNESIUM
     Dosage: 40 MILLIGRAM, QD
     Route: 048
  7. JUBLIA [Concomitant]
     Active Substance: EFINACONAZOLE
     Dosage: UNK
  8. ENTYVIO [Suspect]
     Active Substance: VEDOLIZUMAB
     Dosage: 300 MG, CYCLIC (EVERY 4 WEEKS)
     Route: 042
     Dates: start: 20191203

REACTIONS (3)
  - Intestinal polyp [Unknown]
  - Crohn^s disease [Not Recovered/Not Resolved]
  - Treatment failure [Unknown]
